FAERS Safety Report 9553490 (Version 1)
Quarter: 2013Q3

REPORT INFORMATION
  Report Type: Spontaneous
  Country: JP (occurrence: JP)
  Receive Date: 20130925
  Receipt Date: 20130925
  Transmission Date: 20140515
  Serious: Yes (Hospitalization, Other)
  Sender: FDA-Public Use
  Company Number: JP-IAC JAPAN XML-GBR-2013-0015793

PATIENT
  Age: 80 Year
  Sex: Male

DRUGS (3)
  1. NORSPAN 5MG [Suspect]
     Indication: SPINAL LIGAMENT OSSIFICATION
     Dosage: 5 MCG, Q1H
     Route: 062
     Dates: start: 20130809, end: 20130816
  2. NORSPAN 5MG [Suspect]
     Indication: SPINAL COLUMN STENOSIS
  3. URIEF [Concomitant]
     Route: 048

REACTIONS (1)
  - Cerebral infarction [Unknown]
